FAERS Safety Report 19983253 (Version 3)
Quarter: 2022Q3

REPORT INFORMATION
  Report Type: Spontaneous
  Country: MY (occurrence: MY)
  Receive Date: 20211022
  Receipt Date: 20220708
  Transmission Date: 20221026
  Serious: Yes (Other)
  Sender: FDA-Public Use
  Company Number: MY-002147023-NVSC2021MY234350

PATIENT

DRUGS (3)
  1. RANIBIZUMAB [Suspect]
     Active Substance: RANIBIZUMAB
     Indication: Product used for unknown indication
     Dosage: 6 INJECTION
     Route: 031
  2. RANIBIZUMAB [Suspect]
     Active Substance: RANIBIZUMAB
     Route: 031
  3. RANIBIZUMAB [Suspect]
     Active Substance: RANIBIZUMAB
     Dosage: 10 MG/ML
     Route: 031

REACTIONS (2)
  - Macular fibrosis [Unknown]
  - Epiretinal membrane [Unknown]
